FAERS Safety Report 9206946 (Version 1)
Quarter: 2013Q1

REPORT INFORMATION
  Report Type: Spontaneous
  Country: US (occurrence: None)
  Receive Date: 20120713
  Receipt Date: 20120713
  Transmission Date: 20140127
  Serious: No
  Sender: FDA-Public Use
  Company Number: PHEH2012US007926

PATIENT
  Age: 17 Year
  Sex: Female

DRUGS (1)
  1. ILARIS [Suspect]
     Indication: BEHCET^S SYNDROME
     Dosage: Q8W
     Route: 058
     Dates: start: 20110630

REACTIONS (3)
  - Malaise [None]
  - Sinusitis [None]
  - Nasopharyngitis [None]
